FAERS Safety Report 5153220-5 (Version None)
Quarter: 2006Q4

REPORT INFORMATION
  Report Type: 
  Country: None (occurrence: None)
  Receive Date: 20061117
  Receipt Date: 20060727
  Transmission Date: 20070319
  Serious: Yes (Other)
  Sender: FDA-Public Use
  Company Number: US-ROCHE-457476

PATIENT
  Sex: Female
  Weight: 82.6 kg

DRUGS (1)
  1. XELODA [Suspect]
     Indication: COLON CANCER
     Dosage: INDICATION:STAGE IIB COLON CANCER. DOSAGE REPORTED AS 2000 MG QD M-F
     Route: 048
     Dates: start: 20060331, end: 20060701

REACTIONS (4)
  - COLLAPSE OF LUNG [None]
  - PANCREATIC PSEUDOCYST [None]
  - PANCREATITIS [None]
  - PLEURAL EFFUSION [None]
